FAERS Safety Report 9504280 (Version 1)
Quarter: 2013Q3

REPORT INFORMATION
  Report Type: Spontaneous
  Country: US (occurrence: None)
  Receive Date: 20130905
  Receipt Date: 20130905
  Transmission Date: 20140515
  Serious: Yes (Life-Threatening, Hospitalization, Disabling)
  Sender: FDA-Public Use
  Company Number: None

PATIENT
  Age: 74 Year
  Sex: 0
  Weight: 137 kg

DRUGS (1)
  1. BACTRIM DS [Suspect]
     Route: 048
     Dates: start: 20130405, end: 20130412

REACTIONS (5)
  - Renal failure acute [None]
  - Pulmonary oedema [None]
  - Hypertension [None]
  - Weight increased [None]
  - Nephropathy toxic [None]
